FAERS Safety Report 9702237 (Version 1)
Quarter: 2013Q4

REPORT INFORMATION
  Report Type: Spontaneous
  Country: US (occurrence: US)
  Receive Date: 20131121
  Receipt Date: 20131121
  Transmission Date: 20140711
  Serious: Yes (Other)
  Sender: FDA-Public Use
  Company Number: US-FRI-1000051367

PATIENT
  Age: 20 Year
  Sex: Male

DRUGS (1)
  1. VIIBRYD [Suspect]

REACTIONS (1)
  - Suicidal ideation [Unknown]
